FAERS Safety Report 14472769 (Version 5)
Quarter: 2018Q2

REPORT INFORMATION
  Report Type: Spontaneous
  Country: US (occurrence: US)
  Receive Date: 20180201
  Receipt Date: 20180613
  Transmission Date: 20180711
  Serious: Yes (Other)
  Sender: FDA-Public Use
  Company Number: US-KADMON PHARMACEUTICALS, LLC-KAD-201710-00992

PATIENT
  Sex: Male

DRUGS (6)
  1. RIBAVIRIN. [Suspect]
     Active Substance: RIBAVIRIN
     Dosage: TABLET
     Route: 048
  2. INTERFERON [Suspect]
     Active Substance: INTERFERON
     Indication: HEPATITIS C
  3. EPCLUSA [Suspect]
     Active Substance: SOFOSBUVIR\VELPATASVIR
     Indication: HEPATITIS C
     Dates: end: 20170114
  4. INTERFERON [Suspect]
     Active Substance: INTERFERON
  5. RIBAVIRIN. [Suspect]
     Active Substance: RIBAVIRIN
     Indication: HEPATITIS C
     Dosage: TABLET
     Route: 048
     Dates: end: 201701
  6. RIBAVIRIN. [Suspect]
     Active Substance: RIBAVIRIN
     Dosage: TABLET
     Route: 048
     Dates: end: 20170114

REACTIONS (8)
  - Nasopharyngitis [Unknown]
  - Varices oesophageal [Unknown]
  - Rib fracture [Unknown]
  - Hand fracture [Unknown]
  - Drug ineffective [Unknown]
  - Fatigue [Unknown]
  - Hepatic cirrhosis [Unknown]
  - Influenza [Unknown]
